FAERS Safety Report 8576795-2 (Version None)
Quarter: 2012Q3

REPORT INFORMATION
  Report Type: 
  Country: None (occurrence: None)
  Receive Date: 20120807
  Receipt Date: 20120803
  Transmission Date: 20120928
  Serious: Yes (Hospitalization, Other)
  Sender: FDA-Public Use
  Company Number: AR-AMGEN-US277994

PATIENT
  Age: 55 Year
  Sex: Male
  Weight: 63.5 kg

DRUGS (2)
  1. CINACALCET HYDROCHLORIDE [Suspect]
     Indication: HYPERPARATHYROIDISM SECONDARY
     Dosage: UNK UNK, QD
     Route: 048
     Dates: start: 20070117
  2. ENALAPRIL MALEATE [Concomitant]
     Dosage: 10 MG, QD

REACTIONS (1)
  - CONGESTIVE CARDIOMYOPATHY [None]
